FAERS Safety Report 5581764-0 (Version None)
Quarter: 2008Q1

REPORT INFORMATION
  Report Type: 
  Country: None (occurrence: None)
  Receive Date: 20080104
  Receipt Date: 20071221
  Transmission Date: 20080703
  Serious: Yes (Death, Life-Threatening, Hospitalization, Disabling, Congenital Anomaly)
  Sender: FDA-Public Use
  Company Number: BE-MERCK-00042414B1

PATIENT
  Sex: Female
  Weight: 2 kg

DRUGS (2)
  1. HYZAAR [Suspect]
     Indication: ESSENTIAL HYPERTENSION
     Route: 064
  2. LOGIMAT [Suspect]
     Indication: HYPERTENSION
     Route: 064

REACTIONS (17)
  - ANURIA [None]
  - ATRIAL SEPTAL DEFECT [None]
  - CAPILLARY DISORDER [None]
  - CARDIOVASCULAR DISORDER [None]
  - CONGENITAL ANOMALY [None]
  - DYSMORPHISM [None]
  - FOETAL GROWTH RETARDATION [None]
  - LOWER LIMB DEFORMITY [None]
  - LUNG DISORDER [None]
  - NEONATAL RESPIRATORY DISTRESS SYNDROME [None]
  - PATENT DUCTUS ARTERIOSUS [None]
  - PNEUMOTHORAX [None]
  - PREMATURE BABY [None]
  - PULMONARY HYPERTENSION [None]
  - RENAL DISORDER [None]
  - RENAL TUBULAR DISORDER [None]
  - RESPIRATORY FAILURE [None]
